FAERS Safety Report 13197912 (Version 1)
Quarter: 2017Q1

REPORT INFORMATION
  Report Type: Report from Study
  Country: JP (occurrence: JP)
  Receive Date: 20170208
  Receipt Date: 20170208
  Transmission Date: 20170428
  Serious: Yes (Hospitalization, Other)
  Sender: FDA-Public Use
  Company Number: JP-ASTELLAS-2009JP002690

PATIENT
  Age: 27 Year
  Sex: Female
  Weight: 51 kg

DRUGS (53)
  1. PREDNISOLONE. [Concomitant]
     Active Substance: PREDNISOLONE
     Route: 048
     Dates: start: 20080303, end: 20080309
  2. GASMOTIN [Concomitant]
     Active Substance: MOSAPRIDE CITRATE
     Indication: PROPHYLAXIS
     Route: 048
     Dates: end: 20080807
  3. MUCOSTA [Concomitant]
     Active Substance: REBAMIPIDE
     Route: 048
     Dates: start: 20080519, end: 20081222
  4. MERCAZOLE [Concomitant]
     Active Substance: CARBIMAZOLE
     Indication: PRODUCT USED FOR UNKNOWN INDICATION
     Route: 048
     Dates: end: 20090708
  5. PULMICORT TURBUHALER [Concomitant]
     Active Substance: BUDESONIDE
     Indication: PROPHYLAXIS
     Route: 055
     Dates: end: 20080218
  6. ADOAIR [Concomitant]
     Active Substance: FLUTICASONE PROPIONATE\SALMETEROL XINAFOATE
     Indication: PROPHYLAXIS
     Route: 055
     Dates: start: 20081223, end: 20091005
  7. PRIMPERAN [Concomitant]
     Active Substance: METOCLOPRAMIDE HYDROCHLORIDE
     Indication: GASTROENTERITIS
     Dosage: UNK UNK, UNKNOWN FREQ.
     Route: 065
  8. PREDNISOLONE. [Concomitant]
     Active Substance: PREDNISOLONE
     Indication: LUPUS NEPHRITIS
     Route: 048
     Dates: end: 20080203
  9. PREDNISOLONE. [Concomitant]
     Active Substance: PREDNISOLONE
     Route: 048
     Dates: start: 20080414, end: 20080430
  10. PREDNISOLONE. [Concomitant]
     Active Substance: PREDNISOLONE
     Route: 048
     Dates: start: 20081105, end: 20090122
  11. OMEPRAL                            /00661201/ [Concomitant]
     Active Substance: OMEPRAZOLE
     Indication: PROPHYLAXIS
     Route: 048
     Dates: end: 20090708
  12. CALONAL [Concomitant]
     Active Substance: ACETAMINOPHEN
     Indication: INFLUENZA
     Route: 048
     Dates: start: 20080211, end: 20080213
  13. PREDNISOLONE. [Concomitant]
     Active Substance: PREDNISOLONE
     Route: 048
     Dates: start: 20080310, end: 20080316
  14. PREDNISOLONE. [Concomitant]
     Active Substance: PREDNISOLONE
     Route: 048
     Dates: start: 20080714, end: 20080908
  15. PREDNISOLONE. [Concomitant]
     Active Substance: PREDNISOLONE
     Route: 048
     Dates: start: 20080909, end: 20081104
  16. PREDNISOLONE. [Concomitant]
     Active Substance: PREDNISOLONE
     Route: 048
     Dates: start: 20091217
  17. BIO-THREE [Concomitant]
     Active Substance: HERBALS
     Indication: PROPHYLAXIS
     Route: 048
  18. MUCOSTA [Concomitant]
     Active Substance: REBAMIPIDE
     Indication: PROPHYLAXIS
     Route: 048
     Dates: start: 20080303, end: 20080518
  19. MUCODYNE [Concomitant]
     Active Substance: CARBOCYSTEINE
     Indication: INFLUENZA
     Route: 048
     Dates: start: 20080211, end: 20080221
  20. MUCOSOLVAN [Concomitant]
     Active Substance: AMBROXOL HYDROCHLORIDE
     Indication: PROPHYLAXIS
     Route: 048
     Dates: start: 20081223, end: 20090226
  21. CRAVIT [Concomitant]
     Active Substance: LEVOFLOXACIN
     Indication: GASTROENTERITIS
     Dosage: UNK UNK, UNKNOWN FREQ.
     Route: 065
  22. LAC-B [Concomitant]
     Active Substance: BIFIDOBACTERIUM SPP.
     Indication: GASTROENTERITIS
     Dosage: UNK UNK, UNKNOWN FREQ.
     Route: 048
  23. GASTER [Concomitant]
     Active Substance: FAMOTIDINE
     Indication: GASTROENTERITIS
     Dosage: UNK UNK, UNKNOWN FREQ.
     Route: 065
  24. VASOLAN                            /00014302/ [Concomitant]
     Active Substance: VERAPAMIL HYDROCHLORIDE
     Indication: SUPRAVENTRICULAR TACHYCARDIA
     Dosage: UNK UNK, UNKNOWN FREQ.
     Route: 065
  25. PREDNISOLONE. [Concomitant]
     Active Substance: PREDNISOLONE
     Route: 048
     Dates: start: 20080204, end: 20080302
  26. PREDNISOLONE. [Concomitant]
     Active Substance: PREDNISOLONE
     Route: 048
     Dates: start: 20080331, end: 20080413
  27. PREDNISOLONE. [Concomitant]
     Active Substance: PREDNISOLONE
     Route: 048
     Dates: start: 20080501, end: 20080518
  28. PREDNISOLONE. [Concomitant]
     Active Substance: PREDNISOLONE
     Route: 048
     Dates: start: 20080519, end: 20080713
  29. PREDNISOLONE. [Concomitant]
     Active Substance: PREDNISOLONE
     Route: 048
     Dates: start: 20091006, end: 20091216
  30. GASMOTIN [Concomitant]
     Active Substance: MOSAPRIDE CITRATE
     Route: 048
     Dates: end: 20081104
  31. SEREVENT DISKUS [Concomitant]
     Active Substance: SALMETEROL XINAFOATE
     Indication: PROPHYLAXIS
     Route: 055
     Dates: end: 20081223
  32. RESPLEN [Concomitant]
     Active Substance: EPRAZINONE
     Indication: PROPHYLAXIS
     Route: 048
     Dates: start: 20080211, end: 20080221
  33. TAMIFLU [Concomitant]
     Active Substance: OSELTAMIVIR PHOSPHATE
     Indication: INFLUENZA
     Route: 048
     Dates: start: 20080211, end: 20080213
  34. LACTEC                             /00490001/ [Concomitant]
     Indication: GASTROENTERITIS
     Dosage: UNK UNK, UNKNOWN FREQ.
     Route: 065
  35. TACROLIMUS. [Suspect]
     Active Substance: TACROLIMUS
     Dosage: UNK UNK, UNKNOWN FREQ.
     Route: 048
  36. PREDNISOLONE. [Concomitant]
     Active Substance: PREDNISOLONE
     Route: 048
     Dates: start: 20080317, end: 20080330
  37. PREDNISOLONE. [Concomitant]
     Active Substance: PREDNISOLONE
     Route: 048
     Dates: start: 20090609, end: 20091005
  38. MERCAZOLE [Concomitant]
     Active Substance: CARBIMAZOLE
     Indication: PROPHYLAXIS
     Route: 048
  39. FERROMIA [Concomitant]
     Active Substance: FERROUS CITRATE
     Indication: PROPHYLAXIS
     Route: 048
     Dates: start: 20080501
  40. ADOAIR [Concomitant]
     Active Substance: FLUTICASONE PROPIONATE\SALMETEROL XINAFOATE
     Indication: ASTHMA
     Route: 055
     Dates: start: 20091006
  41. NAUZELIN [Concomitant]
     Active Substance: DOMPERIDONE
     Indication: GASTROENTERITIS
     Dosage: UNK UNK, UNKNOWN FREQ.
     Route: 048
  42. VOLUVEN [Suspect]
     Active Substance: HYDROXYETHYL STARCH 130/0.4
     Indication: BLOOD PRESSURE DECREASED
     Dosage: UNK UNK, UNKNOWN FREQ.
     Route: 065
     Dates: start: 20140611
  43. MERCAZOLE [Concomitant]
     Active Substance: CARBIMAZOLE
     Route: 048
     Dates: start: 20091029, end: 20100217
  44. ULCERLMIN [Concomitant]
     Active Substance: SUCRALFATE
     Indication: PROPHYLAXIS
     Route: 048
     Dates: start: 20090708
  45. THIURAGYL [Concomitant]
     Active Substance: PROPYLTHIOURACIL
     Indication: PRODUCT USED FOR UNKNOWN INDICATION
     Route: 048
     Dates: start: 20090709, end: 20091028
  46. THEO-DUR [Concomitant]
     Active Substance: THEOPHYLLINE ANHYDROUS
     Indication: ASTHMA
     Route: 048
     Dates: start: 20091006
  47. TACROLIMUS. [Suspect]
     Active Substance: TACROLIMUS
     Indication: LUPUS NEPHRITIS
     Route: 048
     Dates: start: 20080204, end: 20090608
  48. PREDNISOLONE. [Concomitant]
     Active Substance: PREDNISOLONE
     Route: 048
     Dates: start: 20090123, end: 20090608
  49. MERCAZOLE [Concomitant]
     Active Substance: CARBIMAZOLE
     Route: 048
     Dates: start: 20100218
  50. FERROMIA [Concomitant]
     Active Substance: FERROUS CITRATE
     Route: 048
     Dates: end: 20090402
  51. RESPLEN [Concomitant]
     Active Substance: EPRAZINONE
     Indication: INFLUENZA
     Route: 048
     Dates: start: 20081223, end: 20090226
  52. GLUCOSE [Concomitant]
     Active Substance: DEXTROSE
     Indication: ALTERED STATE OF CONSCIOUSNESS
     Dosage: UNK UNK, UNKNOWN FREQ.
     Route: 065
  53. NONTHRON [Concomitant]
     Indication: COAGULOPATHY
     Dosage: UNK UNK, UNKNOWN FREQ.
     Route: 065

REACTIONS (11)
  - Platelet count decreased [Recovering/Resolving]
  - Gastroenteritis [Recovering/Resolving]
  - Coagulopathy [Recovering/Resolving]
  - Blood pressure decreased [Recovering/Resolving]
  - Supraventricular tachycardia [Recovering/Resolving]
  - Headache [Recovering/Resolving]
  - Altered state of consciousness [Recovering/Resolving]
  - Asthma [Recovering/Resolving]
  - Gastroenteritis [Recovering/Resolving]
  - White blood cell count decreased [Recovering/Resolving]
  - Influenza [Recovered/Resolved]

NARRATIVE: CASE EVENT DATE: 20080211
